FAERS Safety Report 10148980 (Version 1)
Quarter: 2014Q2

REPORT INFORMATION
  Report Type: Spontaneous
  Country: US (occurrence: US)
  Receive Date: 20140502
  Receipt Date: 20140502
  Transmission Date: 20141212
  Serious: No
  Sender: FDA-Public Use
  Company Number: US-009507513-1404USA015222

PATIENT
  Sex: Male

DRUGS (2)
  1. INTERFERON ALFA-2B [Suspect]
     Indication: HEPATITIS C
     Dosage: UNK
     Route: 065
     Dates: start: 19910101, end: 19910301
  2. METHADONE HYDROCHLORIDE [Concomitant]
     Dosage: UNK, QD

REACTIONS (5)
  - Movement disorder [Unknown]
  - Nightmare [Unknown]
  - Mental status changes [Recovered/Resolved]
  - Depression [Unknown]
  - Suicidal ideation [Unknown]
